FAERS Safety Report 10555029 (Version 1)
Quarter: 2014Q4

REPORT INFORMATION
  Report Type: Spontaneous
  Country: SE (occurrence: SE)
  Receive Date: 20141030
  Receipt Date: 20141030
  Transmission Date: 20150529
  Serious: Yes (Life-Threatening, Hospitalization)
  Sender: FDA-Public Use
  Company Number: SE-BRISTOL-MYERS SQUIBB COMPANY-21519665

PATIENT
  Age: 82 Year
  Sex: Male

DRUGS (7)
  1. ATENOLOL. [Concomitant]
     Active Substance: ATENOLOL
  2. ELIQUIS [Suspect]
     Active Substance: APIXABAN
     Indication: CEREBROVASCULAR ACCIDENT PROPHYLAXIS
     Dosage: TABLET
     Route: 048
     Dates: start: 20140830, end: 20141006
  3. IMOVANE [Concomitant]
     Active Substance: ZOPICLONE
  4. ALVEDON [Concomitant]
     Active Substance: ACETAMINOPHEN
  5. SIMVASTATIN. [Concomitant]
     Active Substance: SIMVASTATIN
  6. LACTULOSE. [Concomitant]
     Active Substance: LACTULOSE
  7. DUROFERON [Concomitant]
     Active Substance: FERROUS SULFATE\FERROUS SULFATE, DRIED

REACTIONS (3)
  - Epilepsy [Recovered/Resolved with Sequelae]
  - Foetal haemoglobin [Unknown]
  - Melaena [Unknown]

NARRATIVE: CASE EVENT DATE: 20140916
